FAERS Safety Report 23671283 (Version 9)
Quarter: 2025Q1

REPORT INFORMATION
  Report Type: Report from Study
  Country: US (occurrence: US)
  Receive Date: 20240326
  Receipt Date: 20250305
  Transmission Date: 20250409
  Serious: Yes (Hospitalization, Other)
  Sender: UCB
  Company Number: US-UCBSA-2024014461

PATIENT
  Sex: Male
  Weight: 52 kg

DRUGS (34)
  1. FINTEPLA [Suspect]
     Active Substance: FENFLURAMINE
     Indication: Lennox-Gastaut syndrome
     Dosage: 6 MILLILITER, 2X/DAY (BID)
     Dates: start: 20220505, end: 20241126
  2. FINTEPLA [Suspect]
     Active Substance: FENFLURAMINE
     Dosage: 4 MILLILITER, 2X/DAY (BID)
  3. FINTEPLA [Suspect]
     Active Substance: FENFLURAMINE
     Dosage: 4 MILLILITER, 2X/DAY (BID)
  4. FINTEPLA [Suspect]
     Active Substance: FENFLURAMINE
     Dosage: 3 MILLILITER, 3X/DAY (TID)
  5. FINTEPLA [Suspect]
     Active Substance: FENFLURAMINE
     Dosage: 3 MILLILITER, 3X/DAY (TID)
  6. BRIVIACT [Suspect]
     Active Substance: BRIVARACETAM
     Indication: Seizure
     Dosage: 50 MILLIGRAM, 2X/DAY (BID)
     Dates: start: 202305
  7. BRIVIACT [Suspect]
     Active Substance: BRIVARACETAM
     Dosage: 60 MILLIGRAM, 3X/DAY (TID)
     Dates: start: 202307
  8. BRIVIACT [Suspect]
     Active Substance: BRIVARACETAM
     Dosage: 75 MILLIGRAM, 3X/DAY (TID)
     Dates: start: 202307
  9. BRIVIACT [Suspect]
     Active Substance: BRIVARACETAM
     Dosage: 150 MILLIGRAM, 3X/DAY (TID)
     Dates: start: 202309
  10. BRIVIACT [Suspect]
     Active Substance: BRIVARACETAM
     Dosage: 175 MILLIGRAM, 3X/DAY (TID)
  11. BRIVIACT [Suspect]
     Active Substance: BRIVARACETAM
     Dosage: 200 MG IN THE MORNING AND 200 MG IN NOON AND 300 MG IN NIGHT, 3X/DAY (TID)
     Route: 048
     Dates: start: 20240528, end: 20240705
  12. BRIVIACT [Suspect]
     Active Substance: BRIVARACETAM
     Dosage: 50 MILLIGRAM, 3X/DAY (TID)
  13. KEPPRA [Suspect]
     Active Substance: LEVETIRACETAM
     Indication: Seizure
     Route: 048
     Dates: start: 20240528, end: 20240705
  14. KEPPRA [Suspect]
     Active Substance: LEVETIRACETAM
  15. KEPPRA [Suspect]
     Active Substance: LEVETIRACETAM
  16. KEPPRA [Suspect]
     Active Substance: LEVETIRACETAM
  17. ONFI [Concomitant]
     Active Substance: CLOBAZAM
     Indication: Product used for unknown indication
     Dosage: 7.5 MILLIGRAM, 2X/DAY (BID)
     Route: 048
     Dates: start: 20240528, end: 20240705
  18. ONFI [Concomitant]
     Active Substance: CLOBAZAM
     Dosage: 5 MILLIGRAM, 2X/DAY (BID)
     Dates: start: 20231223
  19. VALTOCO [Concomitant]
     Active Substance: DIAZEPAM
     Indication: Seizure
     Dates: start: 20240528, end: 20240705
  20. FELBATOL [Concomitant]
     Active Substance: FELBAMATE
     Indication: Product used for unknown indication
     Dosage: 400 MILLIGRAM, 3X/DAY (TID)
     Dates: start: 2022, end: 20240705
  21. NEURONTIN [Concomitant]
     Active Substance: GABAPENTIN
     Indication: Product used for unknown indication
     Dosage: 150 MILLIGRAM, 2X/DAY (BID)
     Route: 048
     Dates: start: 20240520, end: 20240705
  22. LAMOTRIGINE [Concomitant]
     Active Substance: LAMOTRIGINE
     Indication: Product used for unknown indication
     Dosage: 150 MILLIGRAM, 2X/DAY (BID)
     Dates: start: 20240528, end: 20240705
  23. LAMOTRIGINE [Concomitant]
     Active Substance: LAMOTRIGINE
     Dosage: 25 MILLIGRAM, 3X/DAY (TID)
     Dates: start: 20240528, end: 20240705
  24. ATIVAN [Concomitant]
     Active Substance: LORAZEPAM
     Indication: Product used for unknown indication
     Dosage: 1 TABLET, 3X/DAY (TID)
     Route: 048
     Dates: start: 20240520, end: 20240705
  25. ATIVAN [Concomitant]
     Active Substance: LORAZEPAM
     Route: 048
     Dates: start: 20240520, end: 20240705
  26. ROBAXIN [Concomitant]
     Active Substance: METHOCARBAMOL
     Indication: Product used for unknown indication
     Dates: start: 20240509
  27. NAYZILAM [Concomitant]
     Active Substance: MIDAZOLAM
     Indication: Seizure
     Route: 045
  28. MYCOSTATIN [Concomitant]
     Active Substance: NYSTATIN
     Indication: Product used for unknown indication
     Dosage: UNK, 2X/DAY (BID)
     Route: 061
     Dates: start: 20240509
  29. ZOFRAN [Concomitant]
     Active Substance: ONDANSETRON HYDROCHLORIDE
     Indication: Product used for unknown indication
     Route: 048
     Dates: start: 20231121, end: 20240705
  30. SENOKOT-S [Concomitant]
     Active Substance: DOCUSATE SODIUM\SENNOSIDES
     Indication: Constipation
     Route: 048
     Dates: start: 20230705
  31. ULTRAM [Concomitant]
     Active Substance: TRAMADOL HYDROCHLORIDE
     Indication: Product used for unknown indication
     Dosage: 50 MILLIGRAM, ONCE DAILY (QD)
     Route: 048
     Dates: start: 20240705
  32. DESYREL [Concomitant]
     Active Substance: TRAZODONE HYDROCHLORIDE
  33. DEPAKOTE [Concomitant]
     Active Substance: DIVALPROEX SODIUM
     Indication: Product used for unknown indication
     Route: 042
  34. KETOVIE 4:1 [Concomitant]
     Indication: Product used for unknown indication
     Dosage: 1 SHAKE, 3X/DAY (TID)

REACTIONS (20)
  - Seizure [Not Recovered/Not Resolved]
  - Tricuspid valve incompetence [Not Recovered/Not Resolved]
  - Mitral valve incompetence [Unknown]
  - Pulmonary valve incompetence [Unknown]
  - Intracardiac mass [Not Recovered/Not Resolved]
  - Seizure cluster [Unknown]
  - Partial seizures [Unknown]
  - Petit mal epilepsy [Unknown]
  - Generalised tonic-clonic seizure [Unknown]
  - Hallucination [Unknown]
  - Ventriculo-cardiac shunt [Not Recovered/Not Resolved]
  - Electrocardiogram abnormal [Not Recovered/Not Resolved]
  - Migraine [Unknown]
  - Mucopolysaccharidosis III [Unknown]
  - Diplopia [Recovering/Resolving]
  - Blood pressure fluctuation [Unknown]
  - Feeling abnormal [Unknown]
  - Weight decreased [Unknown]
  - Overdose [Unknown]
  - Inappropriate schedule of product administration [Unknown]

NARRATIVE: CASE EVENT DATE: 20230101
